FAERS Safety Report 13856276 (Version 1)
Quarter: 2017Q3

REPORT INFORMATION
  Report Type: Spontaneous
  Country: US (occurrence: US)
  Receive Date: 20170810
  Receipt Date: 20170810
  Transmission Date: 20171127
  Serious: No
  Sender: FDA-Public Use
  Company Number: US-DEPOMED, INC.-US-2017DEP000262

PATIENT

DRUGS (1)
  1. ZIPSOR [Suspect]
     Active Substance: DICLOFENAC POTASSIUM
     Indication: INTERVERTEBRAL DISC DISPLACEMENT
     Dosage: 25 MG, QID
     Route: 048
     Dates: start: 20170103, end: 20170117

REACTIONS (4)
  - Migraine [Recovered/Resolved]
  - Tension headache [Recovered/Resolved]
  - Product use in unapproved indication [Recovered/Resolved]
  - Formication [Recovered/Resolved]

NARRATIVE: CASE EVENT DATE: 20170103
